FAERS Safety Report 4852322-8 (Version None)
Quarter: 2005Q4

REPORT INFORMATION
  Report Type: 
  Country: None (occurrence: None)
  Receive Date: 20051209
  Receipt Date: 20051129
  Transmission Date: 20060501
  Serious: Yes (Hospitalization)
  Sender: FDA-Public Use
  Company Number: COV2-2005-00521

PATIENT
  Age: 81 Year
  Sex: Female
  Weight: 59.5 kg

DRUGS (10)
  1. FOSRENOL [Suspect]
     Indication: HYPERPHOSPHATAEMIA
     Dosage: SEE IMAGE
     Route: 048
     Dates: start: 20050518, end: 20050809
  2. FOSRENOL [Suspect]
     Indication: HYPERPHOSPHATAEMIA
     Dosage: SEE IMAGE
     Route: 048
     Dates: start: 20050828
  3. TIMOLOL MALEATE [Concomitant]
  4. NORVASC   /00972401/ (AMLODIPINE) [Concomitant]
  5. PROTONIX  /01263201/ (PANTOPRAZOLE) [Concomitant]
  6. BENICAR HCT (OLMESARTAN MEDOXOMIL, HYDROCHLOROTHIAZIDE) [Concomitant]
  7. COLACE (DOCUSATE SODIUM) [Concomitant]
  8. ASPIRIN   /00002701/ (ACETYLSALIYCLIC ACID) [Concomitant]
  9. DIOVAN  /01319601/ (VALSARTAN) [Concomitant]
  10. CATAPRES-TTS-1 [Concomitant]

REACTIONS (7)
  - AMNESIA [None]
  - ANAEMIA OF CHRONIC DISEASE [None]
  - CONFUSIONAL STATE [None]
  - FEELING ABNORMAL [None]
  - HYPERTENSION [None]
  - SINUS BRADYCARDIA [None]
  - SYNCOPE [None]
